FAERS Safety Report 24064871 (Version 1)
Quarter: 2024Q3

REPORT INFORMATION
  Report Type: Report from Study
  Country: US (occurrence: US)
  Receive Date: 20240709
  Receipt Date: 20240709
  Transmission Date: 20241016
  Serious: Yes (Death, Other)
  Sender: PFIZER
  Company Number: US-PFIZER INC-PV202400085050

PATIENT
  Age: 33 Year
  Sex: Male

DRUGS (3)
  1. THROMBIN [Suspect]
     Active Substance: THROMBIN
     Indication: Haemostasis
     Dosage: UNK
  2. DEVICE\GELATIN [Suspect]
     Active Substance: DEVICE\GELATIN
     Indication: Haemostasis
     Dosage: UNK
  3. RECOTHROM [Suspect]
     Active Substance: THROMBIN ALFA
     Indication: Haemostasis
     Dosage: UNK

REACTIONS (3)
  - Neoplasm progression [Fatal]
  - Incorrect route of product administration [Unknown]
  - Cerebral vascular occlusion [Unknown]
